FAERS Safety Report 8779488 (Version 1)
Quarter: 2012Q4

REPORT INFORMATION
  Report Type: Report from Study
  Country: DE (occurrence: DE)
  Receive Date: 20120912
  Receipt Date: 20120912
  Transmission Date: 20130627
  Serious: Yes (Hospitalization)
  Sender: FDA-Public Use
  Company Number: DE-ROCHE-1120573

PATIENT
  Age: 76 Year
  Sex: Male

DRUGS (2)
  1. RANIBIZUMAB [Suspect]
     Indication: DIABETIC RETINAL OEDEMA
     Route: 050
     Dates: start: 20120626, end: 20120626
  2. RANIBIZUMAB [Suspect]
     Route: 050
     Dates: start: 20120828, end: 20120828

REACTIONS (1)
  - Angina pectoris [Not Recovered/Not Resolved]
